FAERS Safety Report 19031185 (Version 9)
Quarter: 2025Q1

REPORT INFORMATION
  Report Type: Report from Study
  Country: US (occurrence: US)
  Receive Date: 20210319
  Receipt Date: 20250228
  Transmission Date: 20250409
  Serious: No
  Sender: NOVARTIS
  Company Number: NVSC2021US055298

PATIENT
  Sex: Female

DRUGS (1)
  1. KESIMPTA [Suspect]
     Active Substance: OFATUMUMAB
     Indication: Relapsing multiple sclerosis
     Dosage: 20 MG, QMO
     Route: 058
     Dates: start: 20201214, end: 20210512

REACTIONS (3)
  - Maternal exposure during pregnancy [Unknown]
  - Fatigue [Unknown]
  - Product storage error [Unknown]

NARRATIVE: CASE EVENT DATE: 20210101
